FAERS Safety Report 8229826 (Version 2)
Quarter: 2022Q2

REPORT INFORMATION
  Report Type: Report from Study
  Country: US (occurrence: None)
  Receive Date: 20111104
  Receipt Date: 20220512
  Transmission Date: 20220720
  Serious: Yes (Hospitalization)
  Sender: FDA-Public Use
  Company Number: US-ROCHE-1008540

PATIENT
  Age: 55 Year
  Sex: Female

DRUGS (3)
  1. BEVACIZUMAB [Suspect]
     Active Substance: BEVACIZUMAB
     Indication: Ovarian cancer
     Dosage: MOST RECENT DOSE PRIOR TO SAE 23/SEP/2011
     Route: 042
     Dates: start: 20110624
  2. CARBOPLATIN [Suspect]
     Active Substance: CARBOPLATIN
     Indication: Ovarian cancer
     Dosage: AUC5,MOST RECENT DOSE PRIOR TO SAE  23/SEP/2011
     Route: 042
  3. PACLITAXEL [Suspect]
     Active Substance: PACLITAXEL
     Indication: Ovarian cancer
     Dosage: MOST RECENT DOSE PRIOR TO SAE  23/SEP/2011
     Route: 042
     Dates: start: 20110624

REACTIONS (3)
  - Hypophosphataemia [Recovered/Resolved]
  - Urinary tract infection [Recovered/Resolved]
  - Device related infection [Recovered/Resolved]

NARRATIVE: CASE EVENT DATE: 20111014
